FAERS Safety Report 7546383-5 (Version None)
Quarter: 2011Q2

REPORT INFORMATION
  Report Type: 
  Country: None (occurrence: None)
  Receive Date: 20110614
  Receipt Date: 20110609
  Transmission Date: 20111010
  Serious: Yes (Other)
  Sender: FDA-Public Use
  Company Number: BR-PFIZER INC-2011126404

PATIENT
  Sex: Female

DRUGS (2)
  1. LYRICA [Suspect]
     Indication: FIBROMYALGIA
     Dosage: ONE CAPSULE OF 75 MG, 1X/DAY
     Route: 048
     Dates: start: 20110608
  2. CAPTOPRIL [Concomitant]
     Indication: HYPERTENSION
     Dosage: UNK
     Dates: start: 20080101

REACTIONS (5)
  - NECK PAIN [None]
  - FEELING ABNORMAL [None]
  - DIZZINESS [None]
  - BLOOD PRESSURE INCREASED [None]
  - SOMNOLENCE [None]
